FAERS Safety Report 9477411 (Version 1)
Quarter: 2013Q3

REPORT INFORMATION
  Report Type: Spontaneous
  Country: US (occurrence: US)
  Receive Date: 20130826
  Receipt Date: 20130826
  Transmission Date: 20140515
  Serious: Yes (Other)
  Sender: FDA-Public Use
  Company Number: US-RB-057598-13

PATIENT
  Age: 25 Year
  Sex: Female

DRUGS (12)
  1. SUBOXONE FILM [Suspect]
     Dosage: SUBOXONE FILM
     Route: 060
  2. SUBOXONE FILM [Suspect]
     Indication: DRUG DEPENDENCE
     Dosage: SUBOXONE FILM; THE PATIENT WAS SELF TAPERING AND CUTTING THE FILM
     Route: 060
  3. SUBOXONE FILM [Suspect]
     Dosage: SUBOXONE FILM; DOSING DETAILS UNKNOWN
     Route: 060
     Dates: start: 201208, end: 201209
  4. SUBOXONE FILM [Suspect]
     Dosage: SUBOXONE FILM
     Route: 060
     Dates: start: 2013
  5. UNSPECIFIED INGREDIENT [Suspect]
     Indication: SUBSTANCE USE
     Dosage: DOSING DETAILS UNKNOWN
     Route: 065
     Dates: end: 201308
  6. GENERIC BUPRENORPHINE [Suspect]
     Route: 060
     Dates: start: 201209
  7. GENERIC BUPRENORPHINE [Suspect]
     Indication: DRUG DEPENDENCE
     Dosage: THE PATIENT WAS TAPERING THE DOSE BY CUTTING THE TABLET TO ACHIEVE 4 MG DAILY
     Route: 060
     Dates: end: 2013
  8. TOBACCO [Suspect]
     Indication: NICOTINE DEPENDENCE
     Dosage: DOSING: NO MORE THAN 10 CIGARETTES DAILY
     Route: 055
     Dates: end: 2013
  9. CHANTIX [Suspect]
     Indication: NICOTINE DEPENDENCE
     Dosage: DOSING DETAILS UNKNOWN
     Route: 048
  10. NICOTINE PATCH [Suspect]
     Indication: NICOTINE DEPENDENCE
     Dosage: DOSING DETAILS UNKNOWN
     Route: 065
     Dates: start: 2013, end: 20130421
  11. FIORICET [Suspect]
     Indication: MIGRAINE
     Dosage: DOSAGE: AS NEEDED
     Route: 048
  12. PRENATAL VITAMINS [Suspect]
     Indication: PRENATAL CARE
     Dosage: DOSING: 1 DAILY
     Route: 048

REACTIONS (8)
  - Foetal growth restriction [Recovered/Resolved]
  - Underdose [Recovered/Resolved]
  - Wrong technique in drug usage process [Recovered/Resolved]
  - Drug dependence [Recovered/Resolved]
  - Substance abuse [Recovered/Resolved]
  - Exposure during pregnancy [Recovered/Resolved]
  - Anaemia [Recovered/Resolved]
  - Nausea [Recovered/Resolved]
